FAERS Safety Report 17354967 (Version 2)
Quarter: 2020Q1

REPORT INFORMATION
  Report Type: Report from Study
  Country: DE (occurrence: DE)
  Receive Date: 20200131
  Receipt Date: 20200205
  Transmission Date: 20200409
  Serious: Yes (Hospitalization, Other)
  Sender: FDA-Public Use
  Company Number: NVSC2019DE073678

PATIENT
  Sex: Female

DRUGS (5)
  1. LETROZOLE. [Suspect]
     Active Substance: LETROZOLE
     Indication: BREAST CANCER METASTATIC
     Dosage: 2.5 MG, QD
     Route: 048
     Dates: start: 20190708
  2. KISQALI [Suspect]
     Active Substance: RIBOCICLIB
     Dosage: 400 MG, QD, SCHEMA 21 DAYS INTAKE THAN 7 DAYS PAUSE
     Route: 048
     Dates: start: 20191025, end: 20191118
  3. KISQALI [Suspect]
     Active Substance: RIBOCICLIB
     Indication: BREAST CANCER METASTATIC
     Dosage: 600 MG, SCHEMA 21 DAYS INTAKE THAN 7 DAYS PAUSE
     Route: 048
     Dates: start: 20180801, end: 20190817
  4. KISQALI [Suspect]
     Active Substance: RIBOCICLIB
     Dosage: 400 MG, SCHEMA 21 DAYS INTAKE THAN 7 DAYS PAUSE
     Route: 048
     Dates: start: 20180818, end: 20191014
  5. KISQALI [Suspect]
     Active Substance: RIBOCICLIB
     Dosage: 400 MG, QD, SCHEMA 21 DAYS INTAKE THAN 7 DAYS PAUSE
     Route: 048
     Dates: start: 20191016, end: 20191020

REACTIONS (4)
  - Nausea [Recovered/Resolved]
  - Stenosis [Recovering/Resolving]
  - Helicobacter infection [Recovered/Resolved]
  - Duodenal ulcer [Recovered/Resolved]

NARRATIVE: CASE EVENT DATE: 20191014
